FAERS Safety Report 9477399 (Version 2)
Quarter: 2013Q3

REPORT INFORMATION
  Report Type: Spontaneous
  Country: US (occurrence: US)
  Receive Date: 20130826
  Receipt Date: 20130826
  Transmission Date: 20140515
  Serious: Yes (Other)
  Sender: FDA-Public Use
  Company Number: CHPA2013US013184

PATIENT
  Age: 77 Year
  Sex: Male

DRUGS (1)
  1. ALPHA-KERI MOISTURE RICH OIL [Suspect]
     Indication: DRY SKIN PROPHYLAXIS
     Dosage: 2 CAPFULS, UNK
     Route: 061

REACTIONS (3)
  - Renal failure [Not Recovered/Not Resolved]
  - Diabetes mellitus [Not Recovered/Not Resolved]
  - Drug ineffective [Unknown]
